FAERS Safety Report 7829113-9 (Version None)
Quarter: 2011Q4

REPORT INFORMATION
  Report Type: 
  Country: None (occurrence: None)
  Receive Date: 20111020
  Receipt Date: 20111011
  Transmission Date: 20120403
  Serious: Yes (Other)
  Sender: FDA-Public Use
  Company Number: PHHY2011BR89754

PATIENT
  Age: 81 Year
  Sex: Male

DRUGS (3)
  1. EXFORGE HCT [Suspect]
     Dosage: UNK
  2. VITALUX PLUS [Suspect]
     Dosage: UNK
  3. OCUVITE LUTEIN [Concomitant]
     Dosage: UNK
     Dates: start: 20110201

REACTIONS (2)
  - CATARACT [None]
  - BLINDNESS [None]
